FAERS Safety Report 5104481-X (Version None)
Quarter: 2006Q3

REPORT INFORMATION
  Report Type: 
  Country: None (occurrence: None)
  Receive Date: 20060908
  Receipt Date: 20060908
  Transmission Date: 20061208
  Serious: Yes (Hospitalization)
  Sender: FDA-Public Use
  Company Number: None

PATIENT
  Age: 66 Year
  Sex: Male
  Weight: 62.5964 kg

DRUGS (11)
  1. WARFARIN SODIUM [Suspect]
     Indication: ATRIAL FIBRILLATION
     Dosage: 5 MG DAILY PO
     Route: 048
     Dates: start: 20020219, end: 20060826
  2. WARFARIN SODIUM [Suspect]
     Indication: CARDIOMYOPATHY
     Dosage: 5 MG DAILY PO
     Route: 048
     Dates: start: 20020219, end: 20060826
  3. ASPIRIN [Concomitant]
  4. BUMETANIDE [Concomitant]
  5. SENOKOT [Concomitant]
  6. HYDROCORTISONE [Concomitant]
  7. METOPROLOL [Concomitant]
  8. M.V.I. [Concomitant]
  9. POTASSIUM CHLORIDE [Concomitant]
  10. RANITIDINE [Concomitant]
  11. SODIUM BICARB [Concomitant]

REACTIONS (12)
  - DEMENTIA [None]
  - DRUG ERUPTION [None]
  - DRUG TOXICITY [None]
  - HYPOTENSION [None]
  - INTERNATIONAL NORMALISED RATIO INCREASED [None]
  - LOSS OF CONSCIOUSNESS [None]
  - MENINGITIS [None]
  - MENTAL STATUS CHANGES [None]
  - PLATELET COUNT DECREASED [None]
  - STAPHYLOCOCCAL BACTERAEMIA [None]
  - TACHYCARDIA [None]
  - WHITE BLOOD CELL COUNT INCREASED [None]
